FAERS Safety Report 7594146-7 (Version None)
Quarter: 2011Q3

REPORT INFORMATION
  Report Type: 
  Country: None (occurrence: None)
  Receive Date: 20110706
  Receipt Date: 20110704
  Transmission Date: 20111222
  Serious: Yes (Other)
  Sender: FDA-Public Use
  Company Number: DE-PFIZER INC-2011097454

PATIENT
  Age: 50 Year
  Sex: Female

DRUGS (1)
  1. ZIPRASIDONE HYDROCHLORIDE [Suspect]
     Indication: SCHIZOPHRENIA
     Dosage: 40 MG, 2X/DAY
     Dates: start: 20110101

REACTIONS (3)
  - BUNDLE BRANCH BLOCK RIGHT [None]
  - ELECTROCARDIOGRAM T WAVE INVERSION [None]
  - FEELING ABNORMAL [None]
